FAERS Safety Report 5233806-X (Version None)
Quarter: 2007Q1

REPORT INFORMATION
  Report Type: 
  Country: None (occurrence: None)
  Receive Date: 20061208
  Receipt Date: 20060222
  Transmission Date: 20070707
  Serious: Yes (Other)
  Sender: FDA-Public Use
  Company Number: 2006UW02990

PATIENT
  Age: 49 Year
  Sex: Male
  Weight: 102.05 kg

DRUGS (2)
  1. CRESTOR [Suspect]
     Indication: BLOOD CHOLESTEROL INCREASED
     Dosage: 10 MG QD PO
     Route: 048
     Dates: start: 20060221
  2. TRANZENE [Concomitant]

REACTIONS (3)
  - FEELING JITTERY [None]
  - INSOMNIA [None]
  - SLEEP DISORDER [None]
